FAERS Safety Report 24701373 (Version 1)
Quarter: 2024Q4

REPORT INFORMATION
  Report Type: Spontaneous
  Country: GB (occurrence: GB)
  Receive Date: 20241205
  Receipt Date: 20241205
  Transmission Date: 20250115
  Serious: Yes (Other)
  Sender: ELI LILLY AND COMPANY
  Company Number: None

PATIENT
  Age: 38 Year
  Sex: Female
  Weight: 75 kg

DRUGS (5)
  1. MOUNJARO [Suspect]
     Active Substance: TIRZEPATIDE
     Indication: Weight control
     Dosage: 10 MG, WEEKLY (1/W)
     Route: 065
  2. MIRENA [Concomitant]
     Active Substance: LEVONORGESTREL
     Indication: Contraception
     Dosage: UNK
  3. INFLUENZA VIRUS VACCINE [Concomitant]
     Active Substance: INFLUENZA VIRUS VACCINE
     Indication: Immunisation
     Dosage: UNK
     Dates: start: 20241007, end: 20241007
  4. SPIKEVAX [Concomitant]
     Active Substance: CX-046684
     Indication: Immunisation
     Dosage: UNK
     Dates: start: 20241007, end: 20241007
  5. MODERNA COVID-19 VACCINE [Concomitant]
     Active Substance: ELASOMERAN
     Indication: Immunisation
     Dosage: UNK
     Dates: start: 20241007, end: 20241007

REACTIONS (8)
  - Breath odour [Not Recovered/Not Resolved]
  - Feeding disorder [Not Recovered/Not Resolved]
  - Regurgitation [Not Recovered/Not Resolved]
  - Fluid intake reduced [Not Recovered/Not Resolved]
  - Nausea [Not Recovered/Not Resolved]
  - Vomiting [Not Recovered/Not Resolved]
  - Abdominal pain upper [Not Recovered/Not Resolved]
  - Eructation [Not Recovered/Not Resolved]

NARRATIVE: CASE EVENT DATE: 20241012
